FAERS Safety Report 4421290-5 (Version None)
Quarter: 2004Q3

REPORT INFORMATION
  Report Type: 
  Country: None (occurrence: None)
  Receive Date: 20040804
  Receipt Date: 20040723
  Transmission Date: 20050211
  Serious: Yes (Hospitalization)
  Sender: FDA-Public Use
  Company Number: 04P-167-0262957-00

PATIENT
  Age: 55 Year
  Sex: Female
  Weight: 106 kg

DRUGS (6)
  1. HUMIRA [Suspect]
     Indication: RHEUMATOID ARTHRITIS
     Dosage: 40 MG, 1 IN 2 WK, SUBCUTANEOUS
     Route: 058
     Dates: start: 20040215
  2. FUROSEMIDE [Concomitant]
  3. TRAMADOL HCL [Concomitant]
  4. DOMPERIDONE [Concomitant]
  5. FOLIC ACID [Concomitant]
  6. PREDNISOLONE [Concomitant]

REACTIONS (1)
  - BREAST LUMP REMOVAL [None]
